FAERS Safety Report 7207742-3 (Version None)
Quarter: 2011Q1

REPORT INFORMATION
  Report Type: 
  Country: None (occurrence: None)
  Receive Date: 20110103
  Receipt Date: 20101222
  Transmission Date: 20110831
  Serious: Yes (Hospitalization)
  Sender: FDA-Public Use
  Company Number: US-JNJFOC-20101104654

PATIENT
  Sex: Male
  Weight: 84.37 kg

DRUGS (15)
  1. ACETAMINOPHEN [Concomitant]
     Route: 048
  2. GUAIFENESIN [Concomitant]
     Route: 048
  3. IBUPROFEN [Concomitant]
     Route: 048
  4. CITALOPRAM [Concomitant]
     Route: 048
  5. SULFAMETHOXAZOLE AND TRIMETHOPRIM [Concomitant]
     Route: 048
  6. MAGNESIUM HYDROXIDE W/SIMETHICONE [Concomitant]
     Route: 048
  7. RITONAVIR [Concomitant]
     Route: 048
  8. ALBUTEROL [Concomitant]
     Route: 055
  9. TENOFOVIR DISOPROXIL FUMARATE [Concomitant]
     Route: 048
  10. CHLORPHENIRAMINE [Concomitant]
     Route: 048
  11. TRAZODONE [Concomitant]
     Route: 048
  12. MILK OF MAGNESIA [Concomitant]
  13. PREZISTA [Suspect]
     Indication: HIV INFECTION
     Route: 048
  14. ETRAVIRINE [Concomitant]
     Route: 048
  15. RISPERIDONE [Concomitant]
     Route: 048

REACTIONS (1)
  - SUICIDAL IDEATION [None]
